FAERS Safety Report 15690419 (Version 1)
Quarter: 2018Q4

REPORT INFORMATION
  Report Type: Spontaneous
  Country: SE (occurrence: SE)
  Receive Date: 20181205
  Receipt Date: 20181205
  Transmission Date: 20190205
  Serious: Yes (Other)
  Sender: FDA-Public Use
  Company Number: SE-TEVA-2018-SE-981920

PATIENT
  Age: 50 Year
  Sex: Female
  Weight: 93 kg

DRUGS (11)
  1. INNOVAIR [Suspect]
     Active Substance: BECLOMETHASONE DIPROPIONATE\FORMOTEROL
     Indication: ASTHMA
     Dosage: ^4-8 PUFFAR/DYGN^
     Route: 065
     Dates: start: 2015
  2. ALVESCO [Concomitant]
     Active Substance: CICLESONIDE
  3. SPIRIVA [Concomitant]
     Active Substance: TIOTROPIUM BROMIDE MONOHYDRATE
  4. AEROBEC [Concomitant]
  5. PREDNISOLONE. [Suspect]
     Active Substance: PREDNISOLONE
     Indication: ASTHMA
     Route: 065
     Dates: start: 2015
  6. VENTOLINE [Concomitant]
     Active Substance: ALBUTEROL
  7. FOLACIN [Concomitant]
  8. EMGESAN [Concomitant]
     Active Substance: MAGNESIUM HYDROXIDE
  9. DUROFERON [Concomitant]
     Active Substance: FERROUS SULFATE
  10. CALCICHEW [Concomitant]
     Active Substance: CALCIUM CARBONATE
  11. XOLAIR [Concomitant]
     Active Substance: OMALIZUMAB

REACTIONS (5)
  - Cataract [Not Recovered/Not Resolved]
  - Vision blurred [Not Recovered/Not Resolved]
  - Visual impairment [Not Recovered/Not Resolved]
  - Night blindness [Not Recovered/Not Resolved]
  - Diplopia [Not Recovered/Not Resolved]

NARRATIVE: CASE EVENT DATE: 2017
